FAERS Safety Report 5899659-1 (Version None)
Quarter: 2008Q3

REPORT INFORMATION
  Report Type: 
  Country: None (occurrence: None)
  Receive Date: 20080926
  Receipt Date: 20080917
  Transmission Date: 20090109
  Serious: Yes (Other)
  Sender: FDA-Public Use
  Company Number: US-JNJFOC-20080201472

PATIENT
  Sex: Female
  Weight: 75.75 kg

DRUGS (15)
  1. REMICADE [Suspect]
     Route: 042
  2. REMICADE [Suspect]
     Indication: RHEUMATOID ARTHRITIS
     Route: 042
  3. PREDNISONE [Concomitant]
     Indication: RHEUMATOID ARTHRITIS
  4. METHOTREXATE [Concomitant]
     Indication: RHEUMATOID ARTHRITIS
  5. MOBIC [Concomitant]
     Indication: RHEUMATOID ARTHRITIS
  6. NEXIUM [Concomitant]
     Indication: GASTROOESOPHAGEAL REFLUX DISEASE
  7. DIOVAN [Concomitant]
     Indication: HYPERTENSION
  8. FOLIC ACID [Concomitant]
  9. HYDROCODONE BITARTRATE [Concomitant]
     Indication: PAIN
  10. PROVIGIL [Concomitant]
     Indication: FATIGUE
  11. CYMBALTA [Concomitant]
     Indication: DEPRESSION
  12. LIMICTAL [Concomitant]
     Indication: DEPRESSION
  13. LITHIUM CARBONATE [Concomitant]
     Indication: DEPRESSION
  14. IMPIRAMINE [Concomitant]
     Indication: DEPRESSION
  15. BONIVA [Concomitant]
     Indication: OSTEOPOROSIS

REACTIONS (1)
  - LIGAMENT RUPTURE [None]
